FAERS Safety Report 9228172 (Version 1)
Quarter: 2013Q2

REPORT INFORMATION
  Report Type: Spontaneous
  Country: US (occurrence: US)
  Receive Date: 20130412
  Receipt Date: 20130412
  Transmission Date: 20140414
  Serious: No
  Sender: FDA-Public Use
  Company Number: US-B.I. PHARMACEUTICALS,INC./RIDGEFIELD-2013-BI-09513BP

PATIENT
  Age: 60 Year
  Sex: Female

DRUGS (3)
  1. ZANTAC (RANITIDINE HYDROCHLORIDE) [Suspect]
     Route: 048
  2. PRILOSEC [Suspect]
  3. PREVACID [Suspect]

REACTIONS (1)
  - Drug ineffective [Unknown]
